FAERS Safety Report 14983836 (Version 1)
Quarter: 2018Q2

REPORT INFORMATION
  Report Type: Spontaneous
  Country: US (occurrence: US)
  Receive Date: 20180607
  Receipt Date: 20180607
  Transmission Date: 20180711
  Serious: No
  Sender: FDA-Public Use
  Company Number: US-009507513-1806USA000397

PATIENT
  Age: 6 Year
  Sex: Female

DRUGS (6)
  1. ASMANEX HFA [Suspect]
     Active Substance: MOMETASONE FUROATE
     Dosage: 1 DF, BID
     Route: 055
     Dates: start: 201805
  2. DULERA [Suspect]
     Active Substance: FORMOTEROL FUMARATE DIHYDRATE\MOMETASONE FUROATE
     Indication: CROUP INFECTIOUS
     Dosage: 1 DF, BID
     Route: 055
     Dates: start: 201803, end: 2018
  3. AXID [Concomitant]
     Active Substance: NIZATIDINE
  4. SINGULAIR [Concomitant]
     Active Substance: MONTELUKAST SODIUM
  5. ASMANEX HFA [Suspect]
     Active Substance: MOMETASONE FUROATE
     Indication: CROUP INFECTIOUS
     Dosage: 2 DF, BID
     Route: 055
     Dates: start: 2018, end: 2018
  6. MIRALAX [Concomitant]
     Active Substance: POLYETHYLENE GLYCOL 3350

REACTIONS (3)
  - Drug dose omission [Unknown]
  - Product use in unapproved indication [Unknown]
  - Drug effect decreased [Unknown]

NARRATIVE: CASE EVENT DATE: 2018
